FAERS Safety Report 7796957-1 (Version None)
Quarter: 2011Q4

REPORT INFORMATION
  Report Type: 
  Country: None (occurrence: None)
  Receive Date: 20111005
  Receipt Date: 20110930
  Transmission Date: 20120403
  Serious: No
  Sender: FDA-Public Use
  Company Number: US-PFIZER INC-2011234930

PATIENT
  Sex: Female

DRUGS (6)
  1. LIPITOR [Suspect]
     Dosage: UNK
  2. LISINOPRIL [Concomitant]
     Dosage: UNK
  3. CRESTOR [Suspect]
     Dosage: UNK
  4. BAYCOL [Suspect]
     Dosage: UNK
  5. SYNTHROID [Concomitant]
     Dosage: UNK
  6. LOVASTATIN [Suspect]
     Dosage: UNK

REACTIONS (3)
  - FATIGUE [None]
  - FEELING ABNORMAL [None]
  - LISTLESS [None]
